FAERS Safety Report 7039804-8 (Version None)
Quarter: 2010Q4

REPORT INFORMATION
  Report Type: 
  Country: None (occurrence: None)
  Receive Date: 20101012
  Receipt Date: 20101005
  Transmission Date: 20110411
  Serious: Yes (Life-Threatening, Hospitalization, Disabling, Other)
  Sender: FDA-Public Use
  Company Number: US-MERCK-0608USA00453

PATIENT
  Age: 62 Year
  Sex: Male
  Weight: 75 kg

DRUGS (8)
  1. VYTORIN [Suspect]
     Indication: BLOOD CHOLESTEROL INCREASED
     Route: 048
     Dates: start: 20040101
  2. VYTORIN [Suspect]
     Route: 048
  3. ASPIRIN [Concomitant]
     Indication: STENT PLACEMENT
     Route: 065
  4. PLAVIX [Concomitant]
     Indication: STENT PLACEMENT
     Route: 065
  5. TYLENOL [Concomitant]
     Route: 065
  6. OMEGA-3 MARINE TRIGLYCERIDES [Concomitant]
     Route: 065
  7. CHONDROITIN SULFATE SODIUM AND GLUCOSAMINE SULFATE [Concomitant]
     Route: 065
  8. COREG [Concomitant]
     Route: 065

REACTIONS (11)
  - CARDIAC ARREST [None]
  - CORONARY ARTERY OCCLUSION [None]
  - DRUG ADMINISTRATION ERROR [None]
  - HIGH DENSITY LIPOPROTEIN DECREASED [None]
  - JOINT DISLOCATION [None]
  - MYALGIA [None]
  - MYOCARDIAL INFARCTION [None]
  - POST-TRAUMATIC PAIN [None]
  - RIB FRACTURE [None]
  - ROAD TRAFFIC ACCIDENT [None]
  - WEIGHT DECREASED [None]
